FAERS Safety Report 12882667 (Version 6)
Quarter: 2017Q2

REPORT INFORMATION
  Report Type: Spontaneous
  Country: US (occurrence: US)
  Receive Date: 20161025
  Receipt Date: 20170403
  Transmission Date: 20170830
  Serious: No
  Sender: FDA-Public Use
  Company Number: US-PFIZER INC-2016497636

PATIENT
  Age: 74 Year
  Sex: Male

DRUGS (6)
  1. INLYTA [Suspect]
     Active Substance: AXITINIB
     Indication: RENAL CANCER
     Dosage: 10 MG, UNK
  2. INLYTA [Suspect]
     Active Substance: AXITINIB
     Dosage: 7 MG, 2X/DAY, (1MG TABLETS TOOK 2 TABLETS FOR 2MG TOTAL ), (5 MG TOOK 1TABLET)
     Route: 048
     Dates: start: 20161019
  3. INLYTA [Suspect]
     Active Substance: AXITINIB
     Dosage: 7 MG, 2X/DAY, (1MG TABLETS TOOK 2 TABLETS FOR 2MG TOTAL ), (5 MG TOOK 1TABLET)
     Route: 048
     Dates: start: 20161019
  4. RAMIPRIL. [Concomitant]
     Active Substance: RAMIPRIL
     Indication: BLOOD PRESSURE MEASUREMENT
     Dosage: 30 MG, DAILY (10 MG, TWO IN MORNING AND ONE IN AFTERNOON)
  5. INLYTA [Suspect]
     Active Substance: AXITINIB
     Dosage: 7 MG, 2X/DAY, (1MG TABLETS TOOK 2 TABLETS FOR 2MG TOTAL ), (5 MG TOOK 1TABLET)
  6. CARVEDILOL. [Concomitant]
     Active Substance: CARVEDILOL
     Indication: BLOOD PRESSURE MEASUREMENT
     Dosage: 25 MG, TWICE A DAY (MORNING AND NIGHT)

REACTIONS (2)
  - Diarrhoea [Unknown]
  - Neoplasm progression [Unknown]
